FAERS Safety Report 10109871 (Version 3)
Quarter: 2014Q2

REPORT INFORMATION
  Report Type: Spontaneous
  Country: US (occurrence: None)
  Receive Date: 20140421
  Receipt Date: 20140528
  Transmission Date: 20141212
  Serious: Yes (Other)
  Sender: FDA-Public Use
  Company Number: AEGR000371

PATIENT
  Age: 55 Year
  Sex: Female
  Weight: 98 kg

DRUGS (8)
  1. JUXTAPID [Suspect]
     Indication: TYPE IIA HYPERLIPIDAEMIA
     Route: 048
     Dates: start: 20140307
  2. LISINOPRIL (LISINOPRIL) [Concomitant]
  3. METFORMIN HCI (METFORMIN HYDROCHLORIDE) [Concomitant]
  4. PLAVIX (CLOPIDOGREL BISULFATE) (CLOPIDOGREL BISULFATE) [Concomitant]
  5. WARFARIN SODUUM (WARFARIN SODIUM) [Concomitant]
  6. GEMFIBROZIL (GEMFIBROZIL) [Concomitant]
  7. LANTUS (INSULIN GLARGINE) [Concomitant]
  8. ASPIRIN (ACETYLSALICYLIC ACID) [Concomitant]

REACTIONS (3)
  - Hepatic enzyme increased [None]
  - Constipation [None]
  - Weight decreased [None]
